FAERS Safety Report 24687536 (Version 1)
Quarter: 2024Q4

REPORT INFORMATION
  Report Type: Spontaneous
  Country: US (occurrence: None)
  Receive Date: 20241202
  Receipt Date: 20241202
  Transmission Date: 20250114
  Serious: Yes (Life-Threatening, Disabling)
  Sender: Public
  Company Number: None

PATIENT
  Age: 40 Year
  Sex: Female
  Weight: 67.5 kg

DRUGS (2)
  1. INVEGA SUSTENNA [Suspect]
     Active Substance: PALIPERIDONE PALMITATE
     Indication: Schizoaffective disorder bipolar type
     Dosage: OTHER QUANTITY : 1 INJECTION(S);?OTHER FREQUENCY : MONTHLY;?
     Route: 030
     Dates: start: 20241002, end: 20241127
  2. INVEGA SUSTENNA [Concomitant]
     Active Substance: PALIPERIDONE PALMITATE
     Route: 030
     Dates: start: 20241002, end: 20241127

REACTIONS (7)
  - Dizziness [None]
  - Lethargy [None]
  - Cognitive disorder [None]
  - Syncope [None]
  - Fall [None]
  - Head injury [None]
  - Dyspnoea [None]

NARRATIVE: CASE EVENT DATE: 20241122
